FAERS Safety Report 4986857-4 (Version None)
Quarter: 2006Q2

REPORT INFORMATION
  Report Type: 
  Country: None (occurrence: None)
  Receive Date: 20060428
  Receipt Date: 20060418
  Transmission Date: 20061013
  Serious: Yes (Hospitalization, Other)
  Sender: FDA-Public Use
  Company Number: KR-ABBOTT-06P-090-0331531-00

PATIENT
  Age: 56 Year
  Sex: Male

DRUGS (3)
  1. CYCLOSPORINE [Suspect]
     Indication: IMMUNOSUPPRESSION
     Dosage: NOT REPORTED
     Dates: start: 19880101
  2. PREDNISOLONE [Suspect]
     Indication: IMMUNOSUPPRESSION
     Dosage: NOT REPORTED
     Dates: start: 19880101
  3. AZATHIOPRINE [Suspect]
     Indication: IMMUNOSUPPRESSION
     Dosage: NOT REPORTED
     Dates: start: 19880101

REACTIONS (2)
  - ANAPLASTIC LARGE CELL LYMPHOMA T- AND NULL-CELL TYPES STAGE I [None]
  - MASS [None]
